FAERS Safety Report 4392488-X (Version None)
Quarter: 2004Q3

REPORT INFORMATION
  Report Type: 
  Country: None (occurrence: None)
  Receive Date: 20040702
  Receipt Date: 20040224
  Transmission Date: 20050211
  Serious: Yes (Other)
  Sender: FDA-Public Use
  Company Number: 2004UW03295

PATIENT
  Age: 78 Year
  Sex: Female
  Weight: 65.7716 kg

DRUGS (4)
  1. CRESTOR [Suspect]
     Indication: BLOOD CHOLESTEROL INCREASED
     Dosage: 5 MG PO
     Route: 048
     Dates: start: 20040101
  2. ACCUPRIL [Concomitant]
  3. LEVOXYL [Concomitant]
  4. CELEBREX [Concomitant]

REACTIONS (1)
  - WEIGHT INCREASED [None]
